FAERS Safety Report 18487332 (Version 1)
Quarter: 2020Q4

REPORT INFORMATION
  Report Type: Spontaneous
  Country: JP (occurrence: JP)
  Receive Date: 20201110
  Receipt Date: 20201110
  Transmission Date: 20210114
  Serious: Yes (Hospitalization, Other)
  Sender: FDA-Public Use
  Company Number: JP-BRISTOL-MYERS SQUIBB COMPANY-BMS-2020-091406

PATIENT
  Age: 7 Decade
  Sex: Male

DRUGS (2)
  1. OPDIVO [Suspect]
     Active Substance: NIVOLUMAB
     Indication: COLON CANCER
     Dosage: UNAVAILABLE
     Route: 065
  2. YERVOY [Suspect]
     Active Substance: IPILIMUMAB
     Indication: COLON CANCER
     Route: 065

REACTIONS (6)
  - Headache [Unknown]
  - Electrolyte imbalance [Unknown]
  - Malaise [Unknown]
  - Nausea [Unknown]
  - Hypotension [Unknown]
  - Disorientation [Unknown]
